FAERS Safety Report 24396998 (Version 1)
Quarter: 2024Q4

REPORT INFORMATION
  Report Type: Report from Study
  Country: CA (occurrence: CA)
  Receive Date: 20241004
  Receipt Date: 20241004
  Transmission Date: 20250115
  Serious: Yes (Hospitalization)
  Sender: LEO PHARM
  Company Number: CA-LEO Pharma-373869

PATIENT
  Age: 61 Year
  Sex: Male

DRUGS (2)
  1. ADBRY [Suspect]
     Active Substance: TRALOKINUMAB-LDRM
     Indication: Dermatitis atopic
     Dosage: TREATMENT: UNKNOWN?LOADING DOSE: 600 MG SC?DOSAGE FORM AND STRENGTH: 150 MG/ML PRE-FILLED SYRINGE
     Route: 058
     Dates: start: 20230920
  2. ADBRY [Suspect]
     Active Substance: TRALOKINUMAB-LDRM
     Indication: Dermatitis atopic
     Dosage: TREATMENT: UNKNOWN?MAINTENANCE DOSE: 300MG Q2WEEKS SC?DOSAGE FORM AND STRENGTH: 150 MG/ML PRE-FILLED
     Route: 058

REACTIONS (3)
  - Latent tuberculosis [Unknown]
  - Skin discolouration [Unknown]
  - Scar [Unknown]
